FAERS Safety Report 13665982 (Version 2)
Quarter: 2018Q1

REPORT INFORMATION
  Report Type: Spontaneous
  Country: BR (occurrence: BR)
  Receive Date: 20170619
  Receipt Date: 20180330
  Transmission Date: 20180508
  Serious: Yes (Hospitalization, Other)
  Sender: FDA-Public Use
  Company Number: BR-BIOMARINAP-BR-2017-114329

PATIENT
  Sex: Female
  Weight: 23.5 kg

DRUGS (3)
  1. VIMIZIM [Suspect]
     Active Substance: ELOSULFASE ALFA
     Indication: MUCOPOLYSACCHARIDOSIS IV
     Dosage: UNK, UNK, QW
     Route: 042
     Dates: start: 20141009
  2. ESCITALOPRAM [Concomitant]
     Active Substance: ESCITALOPRAM OXALATE
     Indication: ANXIETY
     Dosage: 10 MG, UNK
  3. VITAMIN D                          /00107901/ [Concomitant]
     Active Substance: ERGOCALCIFEROL
     Indication: VITAMIN D DEFICIENCY
     Dosage: 35 UNK, UNK

REACTIONS (5)
  - Blood potassium decreased [Unknown]
  - Renal colic [Not Recovered/Not Resolved]
  - Urinary tract infection bacterial [Unknown]
  - Nephrolithiasis [Unknown]
  - Renal atrophy [Unknown]
